FAERS Safety Report 6355435-7 (Version None)
Quarter: 2009Q3

REPORT INFORMATION
  Report Type: 
  Country: None (occurrence: None)
  Receive Date: 20090914
  Receipt Date: 20090903
  Transmission Date: 20100115
  Serious: Yes (Other)
  Sender: FDA-Public Use
  Company Number: PHHY2009DE38088

PATIENT
  Age: 80 Year
  Sex: Female

DRUGS (5)
  1. DIOVAN [Suspect]
     Dosage: 160 MG
     Route: 048
     Dates: start: 20080801
  2. NEBIVOLOL [Concomitant]
  3. ALISKIREN [Concomitant]
     Dosage: 150 MG
  4. DOXAZOSIN [Concomitant]
  5. TORASEMIDE [Concomitant]

REACTIONS (10)
  - ABDOMINAL PAIN UPPER [None]
  - ASTHENIA [None]
  - DEPRESSION [None]
  - DIZZINESS [None]
  - DYSPEPSIA [None]
  - DYSPNOEA [None]
  - JOINT STIFFNESS [None]
  - MICTURITION FREQUENCY DECREASED [None]
  - MYALGIA [None]
  - OSTEOPOROSIS [None]
